FAERS Safety Report 7270028-5 (Version None)
Quarter: 2011Q1

REPORT INFORMATION
  Report Type: 
  Country: None (occurrence: None)
  Receive Date: 20110202
  Receipt Date: 20110118
  Transmission Date: 20110831
  Serious: Yes (Hospitalization, Other)
  Sender: FDA-Public Use
  Company Number: US-ROCHE-751672

PATIENT
  Sex: Male
  Weight: 74.8 kg

DRUGS (2)
  1. ACCUTANE [Suspect]
     Indication: ACNE
     Route: 065
     Dates: start: 19950621
  2. ACCUTANE [Suspect]
     Route: 065
     Dates: start: 19950722, end: 19950901

REACTIONS (6)
  - LIP DRY [None]
  - CHOLANGITIS SCLEROSING [None]
  - INFLAMMATORY BOWEL DISEASE [None]
  - COLITIS ULCERATIVE [None]
  - CROHN'S DISEASE [None]
  - INTESTINAL OBSTRUCTION [None]
